FAERS Safety Report 7752881-1 (Version None)
Quarter: 2011Q3

REPORT INFORMATION
  Report Type: 
  Country: None (occurrence: None)
  Receive Date: 20110915
  Receipt Date: 20110906
  Transmission Date: 20111222
  Serious: Yes (Hospitalization, Other)
  Sender: FDA-Public Use
  Company Number: US-SANOFI-AVENTIS-2011SA055877

PATIENT
  Age: 69 Year
  Sex: Male
  Weight: 72.1 kg

DRUGS (5)
  1. LEUCOVORIN CALCIUM [Suspect]
     Indication: COLON CANCER
     Route: 040
     Dates: start: 20110706, end: 20110706
  2. EFUDEX [Suspect]
     Route: 041
     Dates: start: 20110706, end: 20110708
  3. OXALIPLATIN [Suspect]
     Indication: COLON CANCER
     Route: 042
     Dates: start: 20110706, end: 20110706
  4. AVASTIN [Suspect]
     Indication: COLON CANCER
     Route: 040
     Dates: start: 20110706, end: 20110706
  5. EFUDEX [Suspect]
     Indication: COLON CANCER
     Route: 040
     Dates: start: 20110706, end: 20110706

REACTIONS (5)
  - NEUTROPENIA [None]
  - THROMBOCYTOPENIA [None]
  - ANAEMIA [None]
  - HYPOPHOSPHATAEMIA [None]
  - LEUKOPENIA [None]
